FAERS Safety Report 8169389-4 (Version None)
Quarter: 2012Q1

REPORT INFORMATION
  Report Type: 
  Country: None (occurrence: None)
  Receive Date: 20120222
  Receipt Date: 20120213
  Transmission Date: 20120608
  Serious: Yes (Hospitalization)
  Sender: FDA-Public Use
  Company Number: WAES 1104FRA00066

PATIENT
  Age: 33 Year
  Sex: Male

DRUGS (8)
  1. TENOFOVIR DISOPROXIL FUMARATE [Suspect]
     Indication: HIV INFECTION
     Dosage: 300 MG/DAILY/PO
     Route: 048
     Dates: start: 20110328
  2. LAMIVUDINE (EPIVIR HBV) [Suspect]
     Indication: HIV INFECTION
     Dosage: PO 300 MG/DAILY/PO
     Route: 048
     Dates: start: 20110328
  3. PYRIDOXINE HCL [Concomitant]
  4. RIFAMPIN [Concomitant]
  5. RALTEGRAVIR [Suspect]
     Indication: HIV INFECTION
     Dosage: 1600MG/DAILY/ PO
     Route: 048
     Dates: start: 20110328
  6. PYRAZINAMIDE [Concomitant]
  7. ISONIAZID [Concomitant]
  8. ETHAMBUTOL HYDROCHLORIDE [Concomitant]

REACTIONS (1)
  - IMMUNE RECONSTITUTION SYNDROME [None]
